FAERS Safety Report 5867566-6 (Version None)
Quarter: 2008Q3

REPORT INFORMATION
  Report Type: 
  Country: None (occurrence: None)
  Receive Date: 20080902
  Receipt Date: 20070927
  Transmission Date: 20090109
  Serious: No
  Sender: FDA-Public Use
  Company Number: US-ABBOTT-07P-163-0419207-00

PATIENT
  Age: 16 Year
  Sex: Male

DRUGS (2)
  1. DEPAKOTE ER [Suspect]
     Indication: BIPOLAR I DISORDER
     Route: 048
  2. DEPAKOTE ER [Suspect]
     Route: 048

REACTIONS (2)
  - FATIGUE [None]
  - SOMNOLENCE [None]
